FAERS Safety Report 4511958-4 (Version None)
Quarter: 2004Q4

REPORT INFORMATION
  Report Type: 
  Country: None (occurrence: None)
  Receive Date: 20041129
  Receipt Date: 20041118
  Transmission Date: 20050328
  Serious: Yes (Life-Threatening, Hospitalization)
  Sender: FDA-Public Use
  Company Number: US-JNJFOC-20041105423

PATIENT
  Sex: Male

DRUGS (2)
  1. DURAGESIC [Suspect]
     Route: 062
     Dates: start: 20040201
  2. ULTRAM [Concomitant]
     Indication: PAIN
     Dosage: TAKES RARELY, AS NEEDED
     Route: 049
     Dates: start: 20040908

REACTIONS (3)
  - ANGIOPLASTY [None]
  - APPLICATION SITE BRUISING [None]
  - MYOCARDIAL INFARCTION [None]
